FAERS Safety Report 9257695 (Version 1)
Quarter: 2013Q1

REPORT INFORMATION
  Report Type: Spontaneous
  Country: US (occurrence: None)
  Receive Date: 20121212
  Receipt Date: 20121212
  Transmission Date: 20140127
  Serious: No
  Sender: FDA-Public Use
  Company Number: 1208USA012139

PATIENT
  Age: 50 Year
  Sex: Female

DRUGS (3)
  1. REBETOL [Suspect]
     Indication: HEPATITIS C
     Dates: start: 20120619
  2. VICTRELIS [Suspect]
     Indication: HEPATITIS C
     Dates: start: 20120717
  3. PEGASYS (PEGINTERFERON ALFA-2A) [Concomitant]

REACTIONS (11)
  - Insomnia [None]
  - Fatigue [None]
  - Anxiety [None]
  - Dyspnoea [None]
  - Dry mouth [None]
  - Stomatitis [None]
  - Blood glucose decreased [None]
  - Nausea [None]
  - Asthenia [None]
  - Headache [None]
  - Heart rate increased [None]
